FAERS Safety Report 21708061 (Version 2)
Quarter: 2022Q4

REPORT INFORMATION
  Report Type: Spontaneous
  Country: BR (occurrence: BR)
  Receive Date: 20221209
  Receipt Date: 20221221
  Transmission Date: 20230113
  Serious: Yes (Other)
  Sender: FDA-Public Use
  Company Number: BR-SA-SAC20221101001611

PATIENT

DRUGS (3)
  1. LARONIDASE [Suspect]
     Active Substance: LARONIDASE
     Indication: Mucopolysaccharidosis I
     Dosage: 16 DF, QW
     Route: 042
     Dates: start: 2010
  2. LARONIDASE [Suspect]
     Active Substance: LARONIDASE
     Dosage: 22 DF, QW
     Route: 042
  3. LARONIDASE [Suspect]
     Active Substance: LARONIDASE
     Dosage: 20 DF, QW
     Route: 042

REACTIONS (6)
  - Spinal cord injury [Recovering/Resolving]
  - Back pain [Recovering/Resolving]
  - Weight increased [Recovered/Resolved]
  - Corneal disorder [Unknown]
  - Cardiomegaly [Unknown]
  - Inappropriate schedule of product administration [Unknown]

NARRATIVE: CASE EVENT DATE: 20220801
